FAERS Safety Report 6917759-1 (Version None)
Quarter: 2010Q3

REPORT INFORMATION
  Report Type: 
  Country: None (occurrence: None)
  Receive Date: 20100810
  Receipt Date: 20100729
  Transmission Date: 20110219
  Serious: Yes (Other)
  Sender: FDA-Public Use
  Company Number: DE-PFIZER INC-2010095187

PATIENT
  Age: 70 Year
  Sex: Female

DRUGS (2)
  1. XALATAN [Suspect]
     Dosage: UNK
     Route: 047
  2. BISOPROLOL [Interacting]

REACTIONS (5)
  - DRUG INTERACTION [None]
  - HYPOAESTHESIA FACIAL [None]
  - NASAL DISCOMFORT [None]
  - PHARYNGEAL HYPOAESTHESIA [None]
  - THROAT IRRITATION [None]
